FAERS Safety Report 5354171-3 (Version None)
Quarter: 2007Q2

REPORT INFORMATION
  Report Type: 
  Country: None (occurrence: None)
  Receive Date: 20070612
  Receipt Date: 20070607
  Transmission Date: 20071010
  Serious: Yes (Hospitalization)
  Sender: FDA-Public Use
  Company Number: JP-MERCK-0609USA06170

PATIENT
  Age: 86 Year
  Sex: Female

DRUGS (12)
  1. FOSAMAX [Suspect]
     Indication: OSTEOPOROSIS
     Route: 048
     Dates: start: 20060726, end: 20060911
  2. OPALMON [Concomitant]
     Indication: ARTERIOSCLEROSIS OBLITERANS
     Route: 048
  3. LOXOPROFEN SODIUM [Concomitant]
     Indication: ANALGESIC EFFECT
     Route: 048
  4. MUCOSTA [Concomitant]
     Indication: GASTRIC DISORDER
     Route: 048
  5. SENNA [Concomitant]
     Indication: CONSTIPATION
     Route: 048
  6. MAGNESIUM OXIDE [Concomitant]
     Indication: CONSTIPATION
     Route: 048
  7. METOPROLOL TARTRATE [Concomitant]
     Indication: HYPERTENSION
     Route: 048
  8. [THERAPY UNSPECIFIED] [Concomitant]
     Indication: MUSCLE SPASMS
     Route: 048
  9. BUFFERIN [Concomitant]
     Indication: ANGINA PECTORIS
     Route: 048
  10. BLOPRESS [Concomitant]
     Indication: HYPERTENSION
     Route: 048
  11. MYONAL [Concomitant]
     Indication: MYALGIA
     Route: 048
  12. MECOBALAMIN [Concomitant]
     Indication: VITAMIN SUPPLEMENTATION
     Route: 048

REACTIONS (1)
  - GENERALISED ERYTHEMA [None]
